FAERS Safety Report 11171476 (Version 2)
Quarter: 2015Q2

REPORT INFORMATION
  Report Type: Spontaneous
  Country: IT (occurrence: IT)
  Receive Date: 20150608
  Receipt Date: 20150624
  Transmission Date: 20150821
  Serious: Yes (Hospitalization, Other)
  Sender: FDA-Public Use
  Company Number: IT-PFIZER INC-2015188483

PATIENT
  Age: 73 Year
  Sex: Male

DRUGS (2)
  1. TACHIDOL [Suspect]
     Active Substance: ACETAMINOPHEN\CODEINE PHOSPHATE
     Dosage: 9 SACHETS, TOTAL
     Route: 048
     Dates: start: 20150316, end: 20150316
  2. ALPRAZOLAM. [Suspect]
     Active Substance: ALPRAZOLAM
     Dosage: 24 TABLET, TOTAL
     Route: 048
     Dates: start: 20150316, end: 20150316

REACTIONS (3)
  - Drug abuse [Unknown]
  - Intentional self-injury [Unknown]
  - Toxicity to various agents [Unknown]

NARRATIVE: CASE EVENT DATE: 20150316
